FAERS Safety Report 5702711-4 (Version None)
Quarter: 2008Q2

REPORT INFORMATION
  Report Type: 
  Country: None (occurrence: None)
  Receive Date: 20080411
  Receipt Date: 20080407
  Transmission Date: 20081010
  Serious: Yes (Other)
  Sender: FDA-Public Use
  Company Number: A0721362A

PATIENT
  Age: 46 Year
  Sex: Female

DRUGS (2)
  1. LAMICTAL [Suspect]
     Indication: BIPOLAR DISORDER
     Dosage: 200MG THREE TIMES PER DAY
     Route: 048
     Dates: start: 20070101, end: 20080331
  2. XANAX [Concomitant]

REACTIONS (7)
  - APHASIA [None]
  - GASTROINTESTINAL DISORDER [None]
  - INSOMNIA [None]
  - MANIA [None]
  - MENTAL DISORDER [None]
  - NERVOUSNESS [None]
  - TREMOR [None]
